FAERS Safety Report 8399735-8 (Version None)
Quarter: 2012Q2

REPORT INFORMATION
  Report Type: 
  Country: None (occurrence: None)
  Receive Date: 20120531
  Receipt Date: 20120529
  Transmission Date: 20120825
  Serious: No
  Sender: FDA-Public Use
  Company Number: US-PFIZER INC-2012129507

PATIENT
  Sex: Female

DRUGS (2)
  1. GENOTROPIN [Suspect]
     Indication: HYPOPHYSECTOMY
     Dosage: 1 MG, 1X/DAY
     Route: 058
  2. GENOTROPIN [Suspect]
     Dosage: 0.4 MG, 1X/DAY
     Route: 058

REACTIONS (1)
  - DIZZINESS [None]
